FAERS Safety Report 24468636 (Version 3)
Quarter: 2024Q4

REPORT INFORMATION
  Report Type: Spontaneous
  Country: CA (occurrence: CA)
  Receive Date: 20241018
  Receipt Date: 20241029
  Transmission Date: 20250114
  Serious: Yes (Other)
  Sender: CSL BEHRING
  Company Number: CA-BEH-2024182221

PATIENT
  Age: 7 Year
  Sex: Female

DRUGS (1)
  1. ALBUREX [Suspect]
     Active Substance: ALBUMIN HUMAN
     Dosage: FRACTION: 4/4- 100 ML
     Route: 065
     Dates: start: 20241005, end: 20241005

REACTIONS (14)
  - Pyrexia [Unknown]
  - Pulmonary congestion [Unknown]
  - Pulmonary congestion [Unknown]
  - Transfusion reaction [Unknown]
  - Dysplasia [Unknown]
  - Cough [Unknown]
  - Oedema [Unknown]
  - Tachycardia [Unknown]
  - Abdominal pain [Unknown]
  - Oedema [Unknown]
  - Oliguria [Unknown]
  - Pain [Unknown]
  - Peripheral pulse decreased [Unknown]
  - Dyspnoea [Unknown]

NARRATIVE: CASE EVENT DATE: 20241006
